FAERS Safety Report 7331905-X (Version None)
Quarter: 2011Q1

REPORT INFORMATION
  Report Type: 
  Country: None (occurrence: None)
  Receive Date: 20110304
  Receipt Date: 20091118
  Transmission Date: 20110831
  Serious: No
  Sender: FDA-Public Use
  Company Number: US-PFIZER INC-2009300712

PATIENT
  Sex: Male

DRUGS (2)
  1. TEGRETOL [Concomitant]
     Dosage: UNK
  2. DILANTIN [Suspect]
     Indication: CONVULSION
     Dosage: 200 MG, 2X/DAY
     Route: 048
     Dates: start: 20060101

REACTIONS (1)
  - NIGHT SWEATS [None]
